FAERS Safety Report 9377097 (Version 4)
Quarter: 2013Q4

REPORT INFORMATION
  Report Type: Spontaneous
  Country: US (occurrence: US)
  Receive Date: 20130701
  Receipt Date: 20131009
  Transmission Date: 20140711
  Serious: Yes (Other)
  Sender: FDA-Public Use
  Company Number: US-JNJFOC-20130617357

PATIENT
  Sex: Female
  Weight: 92.08 kg

DRUGS (11)
  1. INVEGA [Suspect]
     Indication: SCHIZOPHRENIA
     Route: 048
     Dates: start: 20130424, end: 20130531
  2. INVEGA [Suspect]
     Indication: SCHIZOPHRENIA
     Route: 048
     Dates: start: 2013, end: 2013
  3. INVEGA SUSTENNA [Suspect]
     Indication: SCHIZOPHRENIA
     Route: 030
  4. INVEGA SUSTENNA [Suspect]
     Indication: SCHIZOPHRENIA
     Dosage: FIRST LOADING DOSE
     Route: 030
     Dates: start: 20130531
  5. INVEGA SUSTENNA [Suspect]
     Indication: SCHIZOPHRENIA
     Dosage: SECOND LOADING DOSE
     Route: 030
     Dates: start: 20130606
  6. GABAPENTIN [Concomitant]
     Indication: IRRITABILITY
     Route: 065
     Dates: start: 20130430, end: 20130625
  7. GABAPENTIN [Concomitant]
     Indication: ANXIETY
     Route: 065
     Dates: start: 20130430, end: 20130625
  8. AMBIEN [Concomitant]
     Indication: INSOMNIA
     Route: 048
     Dates: start: 20130424, end: 20130625
  9. PRISTIQ [Concomitant]
     Indication: ANXIETY
     Route: 048
     Dates: start: 20130430, end: 20130625
  10. PRISTIQ [Concomitant]
     Indication: DEPRESSION
     Route: 048
     Dates: start: 20130430, end: 20130625
  11. PRAZOSIN [Concomitant]
     Indication: NIGHTMARE
     Route: 065
     Dates: start: 20130308, end: 20130625

REACTIONS (5)
  - Galactorrhoea [Not Recovered/Not Resolved]
  - Pituitary tumour benign [Unknown]
  - Amenorrhoea [Recovered/Resolved]
  - Hyperprolactinaemia [Unknown]
  - Treatment noncompliance [Unknown]
